FAERS Safety Report 8314087-7 (Version None)
Quarter: 2012Q2

REPORT INFORMATION
  Report Type: 
  Country: None (occurrence: None)
  Receive Date: 20120426
  Receipt Date: 20120420
  Transmission Date: 20120825
  Serious: Yes (Death, Hospitalization)
  Sender: FDA-Public Use
  Company Number: JP-PFIZER INC-2012027042

PATIENT
  Age: 53 Year
  Sex: Male

DRUGS (4)
  1. MEDROL [Suspect]
     Route: 048
  2. CYCLOSPORINE [Suspect]
  3. TACROLIMUS [Suspect]
  4. AZATHIOPRINE [Concomitant]

REACTIONS (1)
  - POST TRANSPLANT LYMPHOPROLIFERATIVE DISORDER [None]
